FAERS Safety Report 26036893 (Version 1)
Quarter: 2025Q4

REPORT INFORMATION
  Report Type: Spontaneous
  Country: IN (occurrence: IN)
  Receive Date: 20251112
  Receipt Date: 20251112
  Transmission Date: 20260118
  Serious: Yes (Hospitalization, Other)
  Sender: NOVO NORDISK
  Company Number: IN-NOVOPROD-890087

PATIENT
  Age: 42 Year
  Sex: Male

DRUGS (6)
  1. NOVOEIGHT [Suspect]
     Active Substance: ANTIHEMOPHILIC FACTOR, HUMAN RECOMBINANT
     Indication: Factor VIII deficiency
     Dosage: RECEIVING AS ON DEMAND THERAPY
  2. NOVOEIGHT [Suspect]
     Active Substance: ANTIHEMOPHILIC FACTOR, HUMAN RECOMBINANT
     Indication: Joint swelling
     Dosage: 30 IU/KG
  3. NOVOEIGHT [Suspect]
     Active Substance: ANTIHEMOPHILIC FACTOR, HUMAN RECOMBINANT
     Indication: Haemarthrosis
  4. TENOFOVIR [Concomitant]
     Active Substance: TENOFOVIR
     Indication: HIV test positive
     Dosage: 300 MG
  5. LAMIVUDINE [Concomitant]
     Active Substance: LAMIVUDINE
     Indication: HIV test positive
     Dosage: 300 MG
  6. EFAVIRENZ [Concomitant]
     Active Substance: EFAVIRENZ
     Indication: HIV test positive
     Dosage: 600 MG

REACTIONS (1)
  - Acute myocardial infarction [Unknown]
